FAERS Safety Report 9786688 (Version 3)
Quarter: 2014Q2

REPORT INFORMATION
  Report Type: Report from Study
  Country: ES (occurrence: ES)
  Receive Date: 20131227
  Receipt Date: 20140403
  Transmission Date: 20141212
  Serious: Yes (Life-Threatening, Hospitalization)
  Sender: FDA-Public Use
  Company Number: ES-CELGENEUS-144-21880-13123463

PATIENT
  Age: 55 Year
  Sex: Male
  Weight: 84 kg

DRUGS (12)
  1. REVLIMID [Suspect]
     Indication: PLASMA CELL MYELOMA
     Dosage: 25 MILLIGRAM
     Route: 048
     Dates: start: 20111021, end: 20111110
  2. REVLIMID [Suspect]
     Dosage: 15 MILLIGRAM
     Route: 048
     Dates: start: 20120319, end: 20120408
  3. REVLIMID [Suspect]
     Dosage: 25 MILLIGRAM
     Route: 048
     Dates: start: 20120919, end: 20121029
  4. REVLIMID [Suspect]
     Dosage: 15 MILLIGRAM
     Route: 048
     Dates: start: 20121225, end: 20130203
  5. REVLIMID [Suspect]
     Dosage: 10 MILLIGRAM
     Route: 048
     Dates: start: 20130417, end: 20130507
  6. REVLIMID [Suspect]
     Dosage: 10 MILLIGRAM
     Route: 048
     Dates: start: 20130618, end: 20130628
  7. DEXAMETHASONE [Suspect]
     Indication: PLASMA CELL MYELOMA
     Route: 048
     Dates: start: 20120517, end: 20120613
  8. DEXAMETHASONE [Suspect]
     Route: 048
     Dates: start: 20130618, end: 20130628
  9. DEXAMETHASONE [Suspect]
     Route: 048
     Dates: start: 201309
  10. ASPIRINE [Concomitant]
     Indication: PROPHYLAXIS
     Route: 065
  11. EZETROL [Concomitant]
     Indication: HYPERCHOLESTEROLAEMIA
     Dosage: 10 MILLIGRAM
     Route: 048
  12. LOSARTAN [Concomitant]
     Indication: HYPERTENSION
     Route: 048

REACTIONS (1)
  - Papillary thyroid cancer [Recovered/Resolved with Sequelae]
